FAERS Safety Report 5277334-4 (Version None)
Quarter: 2007Q1

REPORT INFORMATION
  Report Type: 
  Country: None (occurrence: None)
  Receive Date: 20061213
  Receipt Date: 20051122
  Transmission Date: 20070707
  Serious: Yes (Hospitalization)
  Sender: FDA-Public Use
  Company Number: 05P-163-0317986-00

PATIENT
  Age: 48 Year
  Sex: Female

DRUGS (3)
  1. BIAXIN [Suspect]
     Indication: ASTHMA
     Dosage: PER ORAL
     Route: 048
     Dates: start: 20051015, end: 20051022
  2. BIAXIN [Suspect]
     Indication: NASOPHARYNGITIS
     Dosage: PER ORAL
     Route: 048
     Dates: start: 20051015, end: 20051022
  3. BETASERON [Concomitant]

REACTIONS (1)
  - HALLUCINATION, VISUAL [None]
